FAERS Safety Report 25510720 (Version 1)
Quarter: 2025Q3

REPORT INFORMATION
  Report Type: Spontaneous
  Country: US (occurrence: US)
  Receive Date: 20250703
  Receipt Date: 20250703
  Transmission Date: 20251021
  Serious: No
  Sender: RADIUS PHARM
  Company Number: US-RADIUS HEALTH INC.-2024US006148

PATIENT
  Age: 73 Year
  Sex: Male

DRUGS (1)
  1. TYMLOS [Suspect]
     Active Substance: ABALOPARATIDE
     Indication: Senile osteoporosis
     Route: 058
     Dates: start: 20240717

REACTIONS (8)
  - Vomiting [Not Recovered/Not Resolved]
  - Motion sickness [Not Recovered/Not Resolved]
  - Blood glucose increased [Not Recovered/Not Resolved]
  - Confusional state [Not Recovered/Not Resolved]
  - Intentional dose omission [Unknown]
  - Nausea [Unknown]
  - Fall [Unknown]
  - Retching [Unknown]

NARRATIVE: CASE EVENT DATE: 20240824
